FAERS Safety Report 7510242-4 (Version None)
Quarter: 2011Q2

REPORT INFORMATION
  Report Type: 
  Country: None (occurrence: None)
  Receive Date: 20110527
  Receipt Date: 20110517
  Transmission Date: 20111010
  Serious: Yes (Hospitalization)
  Sender: FDA-Public Use
  Company Number: PHHY2011US42291

PATIENT
  Age: 75 Year
  Sex: Female

DRUGS (4)
  1. METFFORMIN HYDROCHLORIDE [Suspect]
     Dosage: 1000 MG
  2. GLIPIZIDE [Suspect]
     Dosage: 5 MG
  3. SULFAMETHOXAZOLE AND TRIMETHOPRIM [Suspect]
     Dosage: UNK UKN, UNK
  4. NATEGLINIDE [Suspect]
     Dosage: 60 MG

REACTIONS (6)
  - OEDEMA PERIPHERAL [None]
  - HYPOGLYCAEMIA [None]
  - DECREASED APPETITE [None]
  - FEELING HOT [None]
  - OSTEOMYELITIS [None]
  - CONVULSION [None]
